FAERS Safety Report 4520983-9 (Version None)
Quarter: 2004Q4

REPORT INFORMATION
  Report Type: 
  Country: None (occurrence: None)
  Receive Date: 20041206
  Receipt Date: 20041123
  Transmission Date: 20050328
  Serious: Yes (Death, Hospitalization)
  Sender: FDA-Public Use
  Company Number: 2004097083

PATIENT
  Age: 62 Year
  Sex: Male

DRUGS (1)
  1. VIAGRA [Suspect]
     Indication: ERECTILE DYSFUNCTION
     Dosage: 50 MG (50 MG), ORAL
     Route: 048
     Dates: start: 20040827, end: 20040827

REACTIONS (9)
  - ABDOMINAL PAIN [None]
  - ARTERIAL DISORDER [None]
  - ATROPHY [None]
  - CARDIOMEGALY [None]
  - GASTROINTESTINAL DISORDER [None]
  - ILEUS [None]
  - MALAISE [None]
  - RETROPERITONEAL HAEMORRHAGE [None]
  - SMALL INTESTINAL HAEMORRHAGE [None]
